FAERS Safety Report 4948907-0 (Version None)
Quarter: 2006Q1

REPORT INFORMATION
  Report Type: 
  Country: None (occurrence: None)
  Receive Date: 20060316
  Receipt Date: 20060215
  Transmission Date: 20060701
  Serious: Yes (Other)
  Sender: FDA-Public Use
  Company Number: 2003037716

PATIENT
  Sex: Female
  Weight: 60.782 kg

DRUGS (4)
  1. LIPITOR [Suspect]
     Indication: BLOOD CHOLESTEROL
     Dosage: 40 MG (1 IN 1 D), ORAL
     Route: 048
     Dates: start: 19990217
  2. ZOCOR [Suspect]
     Indication: BLOOD CHOLESTEROL
     Dosage: ORAL
     Route: 048
     Dates: start: 19990723, end: 19990101
  3. ZETIA [Suspect]
     Indication: BLOOD CHOLESTEROL
     Dates: start: 20050101
  4. SYNTHROID [Concomitant]

REACTIONS (6)
  - BASEDOW'S DISEASE [None]
  - DRUG INEFFECTIVE [None]
  - MEMORY IMPAIRMENT [None]
  - MUSCLE DISORDER [None]
  - MUSCLE SPASMS [None]
  - OSTEOPENIA [None]
